FAERS Safety Report 13710563 (Version 2)
Quarter: 2017Q3

REPORT INFORMATION
  Report Type: Spontaneous
  Country: RU (occurrence: RU)
  Receive Date: 20170703
  Receipt Date: 20170803
  Transmission Date: 20171127
  Serious: Yes (Disabling, Other)
  Sender: FDA-Public Use
  Company Number: RU-NOVOPROD-551282

PATIENT
  Age: 31 Year
  Sex: Male
  Weight: 62 kg

DRUGS (4)
  1. LANTUS [Concomitant]
     Active Substance: INSULIN GLARGINE
     Indication: TYPE 1 DIABETES MELLITUS
     Dosage: 60 U, QD
     Route: 058
     Dates: start: 2012
  2. PROTAPHANE [Suspect]
     Active Substance: INSULIN HUMAN
     Indication: TYPE 1 DIABETES MELLITUS
     Dosage: UNK
     Route: 058
     Dates: start: 1990, end: 2012
  3. NOVORAPID [Concomitant]
     Active Substance: INSULIN ASPART
     Indication: TYPE 1 DIABETES MELLITUS
     Dosage: 60 - 65 UNITS PER DAY (20-22---20-22---20-21).
     Route: 058
     Dates: start: 2006
  4. ACTRAPID [Concomitant]
     Active Substance: INSULIN HUMAN
     Indication: TYPE 1 DIABETES MELLITUS
     Dosage: UNK
     Route: 058
     Dates: start: 1990, end: 2006

REACTIONS (6)
  - Glaucoma [Recovered/Resolved with Sequelae]
  - Hypertrichosis [Recovered/Resolved]
  - Joint contracture [Recovered/Resolved with Sequelae]
  - Swelling face [Recovered/Resolved]
  - Urinary retention [Recovered/Resolved]
  - Retinal detachment [Recovered/Resolved with Sequelae]

NARRATIVE: CASE EVENT DATE: 2005
